FAERS Safety Report 4418613-X (Version None)
Quarter: 2004Q3

REPORT INFORMATION
  Report Type: 
  Country: None (occurrence: None)
  Receive Date: 20040809
  Receipt Date: 20031204
  Transmission Date: 20050211
  Serious: No
  Sender: FDA-Public Use
  Company Number: US-GLAXOSMITHKLINE-A0442002A

PATIENT
  Age: 70 Year
  Sex: Male

DRUGS (4)
  1. PAXIL [Suspect]
     Indication: DEPRESSION
     Dosage: 20MG PER DAY
     Route: 048
     Dates: start: 20031015
  2. COUMADIN [Concomitant]
  3. LIPITOR [Concomitant]
  4. ATENOLOL [Concomitant]

REACTIONS (3)
  - PLATELET COUNT DECREASED [None]
  - RASH [None]
  - SEXUAL DYSFUNCTION [None]
